FAERS Safety Report 4842807-2 (Version None)
Quarter: 2005Q4

REPORT INFORMATION
  Report Type: 
  Country: None (occurrence: None)
  Receive Date: 20051130
  Receipt Date: 20051026
  Transmission Date: 20060501
  Serious: Yes (Hospitalization)
  Sender: FDA-Public Use
  Company Number: 2005-01720

PATIENT
  Age: 79 Year
  Sex: Male
  Weight: 76 kg

DRUGS (2)
  1. VELCADE [Suspect]
     Indication: MULTIPLE MYELOMA
     Dosage: SEE IMAGE
     Route: 042
     Dates: start: 20050630, end: 20050801
  2. VELCADE [Suspect]
     Indication: MULTIPLE MYELOMA
     Dosage: SEE IMAGE
     Route: 042
     Dates: start: 20050822

REACTIONS (4)
  - HAEMOGLOBIN DECREASED [None]
  - HERPES ZOSTER [None]
  - INTESTINAL OBSTRUCTION [None]
  - PLATELET COUNT DECREASED [None]
